FAERS Safety Report 15271834 (Version 4)
Quarter: 2018Q3

REPORT INFORMATION
  Report Type: Spontaneous
  Country: DK (occurrence: DK)
  Receive Date: 20180813
  Receipt Date: 20180924
  Transmission Date: 20181010
  Serious: Yes (Other)
  Sender: FDA-Public Use
  Company Number: PHHY2018DK068308

PATIENT
  Age: 73 Year
  Sex: Male

DRUGS (38)
  1. REVLIMID [Suspect]
     Active Substance: LENALIDOMIDE
     Indication: PLASMA CELL MYELOMA
     Dosage: 80 MG, UNK
     Route: 048
     Dates: start: 20180305, end: 20180314
  2. REVLIMID [Suspect]
     Active Substance: LENALIDOMIDE
     Dosage: 30 MG, UNK
     Route: 048
     Dates: start: 20180326, end: 20180328
  3. REVLIMID [Suspect]
     Active Substance: LENALIDOMIDE
     Dosage: 720 MG, QW
     Route: 048
     Dates: start: 20180508, end: 20180519
  4. REVLIMID [Suspect]
     Active Substance: LENALIDOMIDE
     Dosage: 102.8571 MILLIGRAM
     Route: 048
     Dates: start: 20180508, end: 20180519
  5. VELCADE [Suspect]
     Active Substance: BORTEZOMIB
     Dosage: 20 MG, (10 MILLIGRAM)
     Route: 058
     Dates: start: 20180326, end: 20180407
  6. VELCADE [Suspect]
     Active Substance: BORTEZOMIB
     Dosage: 15.6 MG/M2, (7.8 MILLIGRAM/SQ. METER)
     Route: 058
     Dates: start: 20180412, end: 20180422
  7. VELCADE [Suspect]
     Active Substance: BORTEZOMIB
     Dosage: 18.4 MG/M2, (9.2 MILLIGRAM/SQ. METER)
     Route: 058
     Dates: start: 20180508, end: 20180519
  8. DEXAMETHASONE. [Suspect]
     Active Substance: DEXAMETHASONE
     Dosage: 480 MG, (120 MILLIGRAM)
     Route: 048
     Dates: start: 20180330, end: 20180422
  9. DEXAMETHASONE. [Suspect]
     Active Substance: DEXAMETHASONE
     Dosage: 120 MG, UNK
     Route: 048
  10. REVLIMID [Suspect]
     Active Substance: LENALIDOMIDE
     Dosage: 80 MILLIGRAM
     Route: 048
     Dates: start: 20180305, end: 20180314
  11. VELCADE [Suspect]
     Active Substance: BORTEZOMIB
     Dosage: UNK
     Route: 058
  12. VELCADE [Suspect]
     Active Substance: BORTEZOMIB
     Dosage: 9.2 MILLIGRAM/SQ. METER
     Route: 058
     Dates: start: 20180508, end: 20180519
  13. REVLIMID [Suspect]
     Active Substance: LENALIDOMIDE
     Dosage: 50 MILLIGRAM
     Route: 048
     Dates: start: 20180330, end: 20180407
  14. VELCADE [Suspect]
     Active Substance: BORTEZOMIB
     Dosage: 7.8 MILLIGRAM/SQ. METER
     Route: 058
     Dates: start: 20180412, end: 20180422
  15. REVLIMID [Suspect]
     Active Substance: LENALIDOMIDE
     Dosage: 100 MILLIGRAM
     Route: 048
     Dates: start: 20180508
  16. REVLIMID [Suspect]
     Active Substance: LENALIDOMIDE
     Dosage: 30 MILLIGRAM
     Route: 048
     Dates: start: 20180326, end: 20180328
  17. REVLIMID [Suspect]
     Active Substance: LENALIDOMIDE
     Dosage: 85.7143 MILLIGRAM
     Route: 048
     Dates: start: 20180412, end: 20180422
  18. VELCADE [Suspect]
     Active Substance: BORTEZOMIB
     Dosage: 10 MILLIGRAM
     Route: 058
     Dates: start: 20180326, end: 20180407
  19. REVLIMID [Suspect]
     Active Substance: LENALIDOMIDE
     Dosage: 350 MG, UNK
     Route: 048
     Dates: start: 20180330, end: 20180407
  20. REVLIMID [Suspect]
     Active Substance: LENALIDOMIDE
     Dosage: 600 MG, UNK
     Route: 048
     Dates: start: 20180412
  21. REVLIMID [Suspect]
     Active Substance: LENALIDOMIDE
     Dosage: 100 MILLIGRAM
     Route: 048
     Dates: start: 20180529, end: 20180607
  22. VELCADE [Suspect]
     Active Substance: BORTEZOMIB
     Indication: PLASMA CELL MYELOMA
     Dosage: 15.6 MG/M2, (7.8 MILLIGRAM/SQ. METER)
     Route: 058
     Dates: start: 20180305, end: 20180314
  23. VELCADE [Suspect]
     Active Substance: BORTEZOMIB
     Dosage: UNK
     Route: 058
     Dates: start: 20180316, end: 20180325
  24. REVLIMID [Suspect]
     Active Substance: LENALIDOMIDE
     Dosage: 100 MILLIGRAM
     Route: 048
     Dates: start: 20180326, end: 20180407
  25. VELCADE [Suspect]
     Active Substance: BORTEZOMIB
     Dosage: 5 MG/M2, (2.5 MILLIGRAM/SQ. METER)
     Route: 058
     Dates: start: 20180326, end: 20180328
  26. ZARZIO [Concomitant]
     Active Substance: FILGRASTIM
     Indication: CHRONIC LYMPHOCYTIC LEUKAEMIA
     Route: 065
  27. VELCADE [Suspect]
     Active Substance: BORTEZOMIB
     Dosage: 2.5 MILLIGRAM/SQ. METER
     Route: 058
     Dates: start: 20180326, end: 20180328
  28. VELCADE [Suspect]
     Active Substance: BORTEZOMIB
     Dosage: 7.5 MILLIGRAM/SQ. METER
     Route: 058
     Dates: start: 20180330, end: 20180407
  29. VELCADE [Suspect]
     Active Substance: BORTEZOMIB
     Dosage: 15 MG/M2, 7.5 MILLIGRAM/SQ. METER
     Route: 058
     Dates: start: 20180330, end: 20180407
  30. VELCADE [Suspect]
     Active Substance: BORTEZOMIB
     Dosage: 7.8 MILLIGRAM/SQ. METER
     Route: 058
     Dates: start: 20180412, end: 20180422
  31. VELCADE [Suspect]
     Active Substance: BORTEZOMIB
     Dosage: 7.8 MILLIGRAM/SQ. METER
     Route: 058
     Dates: start: 20180305
  32. DEXAMETHASONE. [Suspect]
     Active Substance: DEXAMETHASONE
     Indication: PLASMA CELL MYELOMA
     Dosage: 160 MG, QW
     Route: 048
     Dates: start: 20180326, end: 20180328
  33. DEXAMETHASONE. [Suspect]
     Active Substance: DEXAMETHASONE
     Dosage: 640 MG, (91.4286 MILLIGRAM)
     Route: 048
     Dates: start: 20180508, end: 20180519
  34. REVLIMID [Suspect]
     Active Substance: LENALIDOMIDE
     Dosage: 100 MG, UNK
     Route: 048
     Dates: start: 20180326, end: 20180407
  35. REVLIMID [Suspect]
     Active Substance: LENALIDOMIDE
     Dosage: 600 MG, QW
     Route: 048
     Dates: start: 20180508
  36. VELCADE [Suspect]
     Active Substance: BORTEZOMIB
     Dosage: 9.2 MILLIGRAM/SQ. METER
     Route: 058
     Dates: start: 20180508, end: 20180519
  37. VELCADE [Suspect]
     Active Substance: BORTEZOMIB
     Dosage: 7.8 MILLIGRAM/SQ. METER
     Route: 058
     Dates: start: 20180305, end: 20180314
  38. VELCADE [Suspect]
     Active Substance: BORTEZOMIB
     Dosage: 9.2 MILLIGRAM/SQ. METER
     Route: 058
     Dates: start: 20180529, end: 20180607

REACTIONS (6)
  - Lung infection [Recovered/Resolved]
  - Fatigue [Recovered/Resolved]
  - Pneumocystis jirovecii infection [Recovered/Resolved]
  - Dyspnoea [Recovered/Resolved]
  - Fatigue [Recovered/Resolved]
  - Dyspnoea [Recovered/Resolved]

NARRATIVE: CASE EVENT DATE: 20180330
